FAERS Safety Report 25777127 (Version 1)
Quarter: 2025Q3

REPORT INFORMATION
  Report Type: Spontaneous
  Country: US (occurrence: US)
  Receive Date: 20250909
  Receipt Date: 20250909
  Transmission Date: 20251020
  Serious: No
  Sender: DOMPE FARMACEUTICI
  Company Number: US-FARMAPROD-202410-3420

PATIENT
  Sex: Female

DRUGS (16)
  1. OXERVATE [Suspect]
     Active Substance: CENEGERMIN-BKBJ
     Indication: Neurotrophic keratopathy
     Route: 047
     Dates: start: 20231220, end: 20240227
  2. OXERVATE [Suspect]
     Active Substance: CENEGERMIN-BKBJ
     Route: 047
     Dates: start: 20240916
  3. OXERVATE [Suspect]
     Active Substance: CENEGERMIN-BKBJ
  4. MURO-128 [Concomitant]
  5. LEVOTHYROXINE SODIUM [Concomitant]
     Active Substance: LEVOTHYROXINE SODIUM
  6. MIEBO [Concomitant]
     Active Substance: PERFLUOROHEXYLOCTANE
  7. TYRVAYA [Concomitant]
     Active Substance: VARENICLINE TARTRATE
  8. VIMPAT [Concomitant]
     Active Substance: LACOSAMIDE
  9. LATANOPROST [Concomitant]
     Active Substance: LATANOPROST
  10. CLARITIN-D NOS [Concomitant]
     Active Substance: LORATADINE\PSEUDOEPHEDRINE SULFATE
  11. CYMBALTA [Concomitant]
     Active Substance: DULOXETINE HYDROCHLORIDE
  12. SUNOSI [Concomitant]
     Active Substance: SOLRIAMFETOL
  13. TESTOSTERONE [Concomitant]
     Active Substance: TESTOSTERONE
  14. PROGESTERONE [Concomitant]
     Active Substance: PROGESTERONE
  15. ARMOUR THYROID [Concomitant]
     Active Substance: THYROID, PORCINE
  16. UBRELVY [Concomitant]
     Active Substance: UBROGEPANT

REACTIONS (3)
  - Eye discharge [Unknown]
  - Eye pain [Unknown]
  - Eye irritation [Unknown]
